FAERS Safety Report 9626478 (Version 2)
Quarter: 2013Q4

REPORT INFORMATION
  Report Type: Report from Study
  Country: JP (occurrence: JP)
  Receive Date: 20131016
  Receipt Date: 20131104
  Transmission Date: 20140711
  Serious: Yes (Hospitalization)
  Sender: FDA-Public Use
  Company Number: JP-TAKEDA-TCI2013A06020

PATIENT
  Age: 78 Year
  Sex: Male
  Weight: 60 kg

DRUGS (5)
  1. LANSOPRAZOLE [Suspect]
     Indication: PROPHYLAXIS AGAINST GASTROINTESTINAL ULCER
     Dosage: 15 MG, QD
     Route: 048
     Dates: start: 20110704
  2. BAYASPIRIN [Concomitant]
     Indication: THROMBOSIS PROPHYLAXIS
     Dosage: 100 MG, 1 DAY
     Route: 048
  3. LIPITOR [Concomitant]
     Dosage: 10 MG, 1 DAY
     Route: 048
  4. MAGMITT [Concomitant]
     Dosage: 660 MG, 1 DAY
     Route: 048
  5. DIOVAN [Concomitant]
     Indication: HYPERTENSION
     Dosage: 80 MG, 1 DAY
     Route: 048
     Dates: start: 20110921

REACTIONS (1)
  - Oedema peripheral [Recovered/Resolved]
